FAERS Safety Report 25705364 (Version 1)
Quarter: 2025Q3

REPORT INFORMATION
  Report Type: Spontaneous
  Country: GB (occurrence: GB)
  Receive Date: 20250820
  Receipt Date: 20250820
  Transmission Date: 20251020
  Serious: Yes (Other)
  Sender: AUROBINDO
  Company Number: GB-MHRA-MED-202508081552070820-GVYDT

PATIENT
  Age: 35 Year
  Sex: Female

DRUGS (2)
  1. TERBINAFINE [Suspect]
     Active Substance: TERBINAFINE
     Indication: Adverse drug reaction
     Route: 065
     Dates: start: 20241001
  2. Yacella [Concomitant]
     Indication: Oral contraception
     Route: 065
     Dates: start: 2005

REACTIONS (1)
  - Amenorrhoea [Not Recovered/Not Resolved]
